FAERS Safety Report 4950782-5 (Version None)
Quarter: 2006Q1

REPORT INFORMATION
  Report Type: 
  Country: None (occurrence: None)
  Receive Date: 20060322
  Receipt Date: 20021101
  Transmission Date: 20060701
  Serious: Yes (Other)
  Sender: FDA-Public Use
  Company Number: DE-BRISTOL-MYERS SQUIBB COMPANY-13310255

PATIENT
  Age: 45 Year
  Sex: Male
  Weight: 73 kg

DRUGS (10)
  1. REYATAZ [Suspect]
     Indication: HIV INFECTION
  2. CRIXIVAN [Suspect]
     Indication: HIV INFECTION
     Dates: start: 19990601
  3. NORVIR [Suspect]
     Indication: HIV INFECTION
     Dates: start: 19990701
  4. AGENERASE [Suspect]
     Indication: HIV INFECTION
     Dates: start: 20000801
  5. KALETRA [Suspect]
     Indication: HIV INFECTION
     Dates: start: 20000801
  6. INVIRASE [Suspect]
     Indication: HIV INFECTION
  7. VIREAD [Suspect]
     Indication: HIV INFECTION
  8. EPIVIR [Suspect]
     Indication: HIV INFECTION
  9. ALLOPURINOL [Concomitant]
  10. PHENPROCOUMON [Concomitant]

REACTIONS (6)
  - ALANINE AMINOTRANSFERASE INCREASED [None]
  - ASPARTATE AMINOTRANSFERASE INCREASED [None]
  - BLOOD BILIRUBIN INCREASED [None]
  - FAT TISSUE INCREASED [None]
  - HYPERURICAEMIA [None]
  - LIPOATROPHY [None]
